FAERS Safety Report 23248712 (Version 4)
Quarter: 2025Q3

REPORT INFORMATION
  Report Type: Report from Study
  Country: US (occurrence: US)
  Receive Date: 20231201
  Receipt Date: 20250809
  Transmission Date: 20251020
  Serious: Yes (Other)
  Sender: ALEXION PHARMACEUTICALS
  Company Number: US-ALXN-A202312301AA

PATIENT
  Age: 37 Year
  Sex: Female

DRUGS (1)
  1. STRENSIQ [Suspect]
     Active Substance: ASFOTASE ALFA
     Indication: Hypophosphatasia
     Route: 065

REACTIONS (26)
  - Transient ischaemic attack [Unknown]
  - Hypophosphatasia [Not Recovered/Not Resolved]
  - Condition aggravated [Not Recovered/Not Resolved]
  - Pain [Not Recovered/Not Resolved]
  - Depressed mood [Unknown]
  - Foot fracture [Unknown]
  - Bone pain [Unknown]
  - Mental disorder [Unknown]
  - Tearfulness [Unknown]
  - Dysstasia [Recovering/Resolving]
  - Fear [Unknown]
  - Sleep deficit [Unknown]
  - Agitation [Unknown]
  - Chondrocalcinosis [Unknown]
  - Arthralgia [Unknown]
  - Grip strength decreased [Unknown]
  - Pain of skin [Unknown]
  - Gait disturbance [Unknown]
  - Asthenia [Unknown]
  - Weight increased [Unknown]
  - Hyperaesthesia [Unknown]
  - Hypersensitivity [Unknown]
  - Degenerative bone disease [Unknown]
  - Osteoarthritis [Unknown]
  - Product use complaint [Unknown]
  - Injection site pain [Unknown]

NARRATIVE: CASE EVENT DATE: 20230913
